FAERS Safety Report 5772401-0 (Version None)
Quarter: 2008Q2

REPORT INFORMATION
  Report Type: 
  Country: None (occurrence: None)
  Receive Date: 20080613
  Receipt Date: 20080610
  Transmission Date: 20081010
  Serious: Yes (Life-Threatening, Hospitalization, Disabling)
  Sender: FDA-Public Use
  Company Number: US-GENENTECH-231325

PATIENT
  Sex: Female
  Weight: 99.7 kg

DRUGS (11)
  1. BEVACIZUMAB [Suspect]
     Indication: GLIOBLASTOMA
     Dosage: 997 MG, Q2W
     Route: 042
     Dates: start: 20061005
  2. IRINOTECAN HCL [Suspect]
     Indication: GLIOBLASTOMA
     Dosage: 271 MG, Q2W
     Route: 042
     Dates: start: 20061005
  3. CEFTAZIDIME [Concomitant]
     Indication: DRUG USE FOR UNKNOWN INDICATION
     Dosage: 1 G, Q8H
     Dates: start: 20061012, end: 20061023
  4. FILGRASTIM [Concomitant]
     Indication: DRUG USE FOR UNKNOWN INDICATION
     Dosage: 480 A?G, QD
     Route: 058
     Dates: start: 20061012, end: 20061023
  5. DEXAMETHASONE TAB [Concomitant]
     Indication: DRUG USE FOR UNKNOWN INDICATION
     Dosage: 8 MG, Q6H
     Route: 042
     Dates: start: 20061012, end: 20061021
  6. OXYGEN [Concomitant]
     Indication: DRUG USE FOR UNKNOWN INDICATION
     Route: 045
     Dates: start: 20061012, end: 20061021
  7. RANITIDINE [Concomitant]
     Indication: DRUG USE FOR UNKNOWN INDICATION
     Dosage: 50 MG, Q8H
     Route: 042
     Dates: start: 20061013, end: 20061017
  8. FUROSEMIDE [Concomitant]
     Indication: DRUG USE FOR UNKNOWN INDICATION
     Dosage: 20 MG, SINGLE
     Route: 042
     Dates: start: 20061016, end: 20061017
  9. OCTREOTIDE ACETATE [Concomitant]
     Indication: DRUG USE FOR UNKNOWN INDICATION
     Dosage: 200 A?G, Q12H
     Route: 058
     Dates: start: 20061012, end: 20061016
  10. MORPHINE [Concomitant]
     Indication: DRUG USE FOR UNKNOWN INDICATION
     Dosage: 2 MG, PRN
     Route: 042
     Dates: start: 20061012, end: 20061017
  11. NACL 0.9% + 20 MEQ KCL [Concomitant]

REACTIONS (1)
  - CEREBRAL HAEMORRHAGE [None]
